FAERS Safety Report 7555158-2 (Version None)
Quarter: 2011Q2

REPORT INFORMATION
  Report Type: 
  Country: None (occurrence: None)
  Receive Date: 20110617
  Receipt Date: 20110607
  Transmission Date: 20111010
  Serious: Yes (Death)
  Sender: FDA-Public Use
  Company Number: JP-ABBOTT-11P-087-0729466-00

PATIENT
  Age: 79 Year
  Sex: Male

DRUGS (5)
  1. NORVASC [Concomitant]
     Indication: HYPERTENSION
     Route: 048
  2. LEUPROLIDE ACETATE [Suspect]
     Indication: PROSTATE CANCER STAGE II
     Route: 058
     Dates: start: 20060301, end: 20071024
  3. INHIBACE [Concomitant]
     Indication: HYPERTENSION
     Route: 048
  4. MAGNESIUM OXIDE [Concomitant]
     Indication: CONSTIPATION
     Route: 048
     Dates: start: 20060410
  5. MAGNESIUM OXIDE [Concomitant]
     Route: 048
     Dates: end: 20070625

REACTIONS (2)
  - BENIGN PROSTATIC HYPERPLASIA [None]
  - AORTIC DISSECTION [None]
